FAERS Safety Report 5925542-9 (Version None)
Quarter: 2008Q4

REPORT INFORMATION
  Report Type: 
  Country: None (occurrence: None)
  Receive Date: 20081021
  Receipt Date: 20081016
  Transmission Date: 20090506
  Serious: Yes (Death, Hospitalization, Other)
  Sender: FDA-Public Use
  Company Number: PHHY2008AU20610

PATIENT
  Sex: Male

DRUGS (3)
  1. CLOZARIL [Suspect]
     Indication: SCHIZOPHRENIA
     Dosage: 200 MG
     Dates: start: 20000412
  2. SERTRALINE [Concomitant]
     Dosage: 100 MG, QHS
     Dates: start: 20080422
  3. QUETIAPINE FUMARATE [Concomitant]
     Dosage: 100 MG, PRN

REACTIONS (5)
  - COMA [None]
  - DEPRESSION [None]
  - OVERDOSE [None]
  - PARANOIA [None]
  - STRESS [None]
